FAERS Safety Report 5391162-0 (Version None)
Quarter: 2007Q3

REPORT INFORMATION
  Report Type: 
  Country: None (occurrence: None)
  Receive Date: 20070719
  Receipt Date: 20070712
  Transmission Date: 20080115
  Serious: Yes (Hospitalization, Disabling)
  Sender: FDA-Public Use
  Company Number: PHBS2007JP09858

PATIENT
  Age: 65 Year
  Sex: Female

DRUGS (1)
  1. ZOMETA [Suspect]
     Indication: METASTASES TO BONE
     Dosage: UNK, UNK
     Route: 042
     Dates: end: 20070425

REACTIONS (15)
  - BIOPSY [None]
  - BONE DISORDER [None]
  - BREATH ODOUR [None]
  - EDENTULOUS [None]
  - GINGIVITIS [None]
  - HAEMATOCRIT DECREASED [None]
  - HAEMOGLOBIN DECREASED [None]
  - INSOMNIA [None]
  - OSTEONECROSIS [None]
  - PAIN IN JAW [None]
  - PURULENT DISCHARGE [None]
  - RED BLOOD CELL COUNT DECREASED [None]
  - SURGERY [None]
  - TOOTH EXTRACTION [None]
  - TOOTHACHE [None]
